FAERS Safety Report 6294754-X (Version None)
Quarter: 2009Q3

REPORT INFORMATION
  Report Type: 
  Country: None (occurrence: None)
  Receive Date: 20090731
  Receipt Date: 20090731
  Transmission Date: 20100115
  Serious: No
  Sender: FDA-Public Use
  Company Number: None

PATIENT
  Age: 55 Year
  Sex: Female
  Weight: 84.5 kg

DRUGS (1)
  1. PROCHLOROPERAZINE 10 MG/2 ML BAXTER [Suspect]
     Indication: NAUSEA
     Dosage: 10 MG ONCE IV, ONE DOSE
     Route: 042
     Dates: start: 20090723, end: 20090723

REACTIONS (2)
  - DYSKINESIA [None]
  - TREMOR [None]
